FAERS Safety Report 25924032 (Version 1)
Quarter: 2025Q4

REPORT INFORMATION
  Report Type: Spontaneous
  Country: US (occurrence: US)
  Receive Date: 20251015
  Receipt Date: 20251015
  Transmission Date: 20260118
  Serious: Yes (Other)
  Sender: MYLAN
  Company Number: US-MYLANLABS-2025M1087423

PATIENT
  Age: 25 Year
  Sex: Male

DRUGS (12)
  1. DIAZEPAM [Suspect]
     Active Substance: DIAZEPAM
     Indication: Rectal tenesmus
     Dosage: UNK
  2. DIAZEPAM [Suspect]
     Active Substance: DIAZEPAM
     Dosage: UNK
     Route: 054
  3. DIAZEPAM [Suspect]
     Active Substance: DIAZEPAM
     Dosage: UNK
     Route: 054
  4. DIAZEPAM [Suspect]
     Active Substance: DIAZEPAM
     Dosage: UNK
  5. HYOSCYAMINE [Suspect]
     Active Substance: HYOSCYAMINE
     Indication: Diarrhoea
     Dosage: UNK
  6. HYOSCYAMINE [Suspect]
     Active Substance: HYOSCYAMINE
     Dosage: UNK
     Route: 065
  7. HYOSCYAMINE [Suspect]
     Active Substance: HYOSCYAMINE
     Dosage: UNK
     Route: 065
  8. HYOSCYAMINE [Suspect]
     Active Substance: HYOSCYAMINE
     Dosage: UNK
  9. DICYCLOMINE [Concomitant]
     Active Substance: DICYCLOMINE HYDROCHLORIDE
     Indication: Defaecation urgency
     Dosage: UNK
  10. DICYCLOMINE [Concomitant]
     Active Substance: DICYCLOMINE HYDROCHLORIDE
     Dosage: UNK
     Route: 065
  11. DICYCLOMINE [Concomitant]
     Active Substance: DICYCLOMINE HYDROCHLORIDE
     Dosage: UNK
     Route: 065
  12. DICYCLOMINE [Concomitant]
     Active Substance: DICYCLOMINE HYDROCHLORIDE
     Dosage: UNK

REACTIONS (2)
  - Drug ineffective for unapproved indication [Unknown]
  - Off label use [Unknown]
